FAERS Safety Report 17906175 (Version 1)
Quarter: 2020Q2

REPORT INFORMATION
  Report Type: Spontaneous
  Country: ES (occurrence: ES)
  Receive Date: 20200617
  Receipt Date: 20200617
  Transmission Date: 20200714
  Serious: Yes (Hospitalization)
  Sender: FDA-Public Use
  Company Number: ES-TEVA-2020-ES-1453893

PATIENT
  Age: 84 Year
  Sex: Female

DRUGS (1)
  1. ENALAPRIL HYDROCHLOROTHIAZIDE [Suspect]
     Active Substance: ENALAPRIL\HYDROCHLOROTHIAZIDE
     Indication: HYPERTENSION
     Dosage: 1 DOSAGE FORMS DAILY; 1-0-0
     Route: 048
     Dates: start: 20190916, end: 20200525

REACTIONS (4)
  - Amnesia [Recovering/Resolving]
  - Apraxia [Recovering/Resolving]
  - Balance disorder [Recovering/Resolving]
  - Hyponatraemia [Recovering/Resolving]

NARRATIVE: CASE EVENT DATE: 20200526
